FAERS Safety Report 16240416 (Version 2)
Quarter: 2019Q2

REPORT INFORMATION
  Report Type: Spontaneous
  Country: KR (occurrence: KR)
  Receive Date: 20190425
  Receipt Date: 20190606
  Transmission Date: 20190711
  Serious: Yes (Hospitalization, Other)
  Sender: FDA-Public Use
  Company Number: KR-009507513-1904KOR006352

PATIENT
  Sex: Female

DRUGS (29)
  1. MATRIFEN [Concomitant]
     Active Substance: FENTANYL
     Dosage: FORMULATION: PATCH, 12MCG/H 4.2 CM^2, QUANTITY: 1, DAYS: 11
     Dates: start: 20190329, end: 20190329
  2. PETHIDINE HCL HANA [Concomitant]
     Dosage: QUANTITY: 1, DAYS: 1
     Dates: start: 20190226, end: 20190226
  3. MATRIFEN [Concomitant]
     Active Substance: FENTANYL
     Dosage: FORMULATION: PATCH, 12MCG/H 4.2 CM^2, QUANTITY: 1, DAYS: 3
     Dates: start: 20190412, end: 20190418
  4. MORPHINE HYDROCHLORIDE [Concomitant]
     Active Substance: MORPHINE HYDROCHLORIDE
     Dosage: QUANTITY: 2, DAYS: 1
     Dates: start: 20190225, end: 20190225
  5. TAMIPOOL [Concomitant]
     Active Substance: VITAMINS
     Dosage: QUANTITY: 1, DAYS: 2
     Dates: start: 20190226, end: 20190227
  6. HEPARIN SODIUM. [Concomitant]
     Active Substance: HEPARIN SODIUM
     Dosage: QUANTITY: 5, DAYS: 2
     Dates: start: 20190329, end: 20190329
  7. KEYTRUDA [Suspect]
     Active Substance: PEMBROLIZUMAB
     Indication: GALLBLADDER CANCER METASTATIC
     Dosage: QUANTITY: 2, DAYS: 1
     Dates: start: 20190226
  8. ALBUMIN HUMAN [Concomitant]
     Active Substance: ALBUMIN HUMAN
     Dosage: 100 MILLILITER, QUANTITY: 1, DAYS: 2
     Dates: start: 20190226, end: 20190227
  9. CEFOTAXIME SODIUM [Concomitant]
     Active Substance: CEFOTAXIME SODIUM
     Dosage: QUANTITY: 1, DAYS: 1
     Dates: start: 20190412, end: 20190412
  10. SODIUM CHLORIDE. [Concomitant]
     Active Substance: SODIUM CHLORIDE
     Dosage: 50 MILLILITER, QUANTITY: 1, DAYS: 1
     Dates: start: 20190328, end: 20190328
  11. FLAGYL (METRONIDAZOLE BENZOATE) [Concomitant]
     Active Substance: METRONIDAZOLE BENZOATE
     Dosage: QUANTITY: 2, DAYS: 1
     Dates: start: 20190225, end: 20190225
  12. NEXIUM I.V. [Concomitant]
     Active Substance: ESOMEPRAZOLE SODIUM
     Dosage: QUANTITY: 1, DAYS: 4
     Dates: start: 20190225, end: 20190227
  13. ALBUMIN HUMAN [Concomitant]
     Active Substance: ALBUMIN HUMAN
     Dosage: 50 MILLILITER, QUANTITY: 1, DAYS: 3
     Dates: start: 20190412, end: 20190429
  14. WINUF [Concomitant]
     Dosage: QUANTITY: 1, DAYS: 2
     Dates: start: 20190226, end: 20190227
  15. HEPARIN SODIUM. [Concomitant]
     Active Substance: HEPARIN SODIUM
     Dosage: QUANTITY: 2, DAYS: 5
     Dates: start: 20190225, end: 20190228
  16. KEYTRUDA [Suspect]
     Active Substance: PEMBROLIZUMAB
     Dosage: QUANTITY: 2, DAYS: 1
     Dates: start: 20190328
  17. KEYTRUDA [Suspect]
     Active Substance: PEMBROLIZUMAB
     Dosage: QUANTITY: 2, DAYS: 1
     Dates: start: 20190417
  18. ALBUMIN HUMAN [Concomitant]
     Active Substance: ALBUMIN HUMAN
     Dosage: QUANTITY: 1, DAYS: 1
     Dates: start: 20190329, end: 20190329
  19. ALBUMIN HUMAN [Concomitant]
     Active Substance: ALBUMIN HUMAN
     Dosage: 100 MILLILITER, QUANTITY: 1, DAYS: 1
     Dates: start: 20190421, end: 20190421
  20. CEFOTAXIME SODIUM [Concomitant]
     Active Substance: CEFOTAXIME SODIUM
     Dosage: QUANTITY: 1, DAYS: 2
     Dates: start: 20190225, end: 20190226
  21. CEFOTAXIME SODIUM [Concomitant]
     Active Substance: CEFOTAXIME SODIUM
     Dosage: QUANTITY: 2, DAYS: 1
     Dates: start: 20190225, end: 20190225
  22. SODIUM CHLORIDE. [Concomitant]
     Active Substance: SODIUM CHLORIDE
     Dosage: 50 ML, QUANTITY: 1, DAYS: 1
     Dates: start: 20190226, end: 20190226
  23. MORPHINE HYDROCHLORIDE [Concomitant]
     Active Substance: MORPHINE HYDROCHLORIDE
     Dosage: QUANTITY: 2, DAYS: 1
     Dates: start: 20190512, end: 20190512
  24. PETHIDINE HCL HANA [Concomitant]
     Dosage: QUANTITY: 1, DAYS: 1
     Dates: start: 20190328, end: 20190328
  25. FLAGYL (METRONIDAZOLE BENZOATE) [Concomitant]
     Active Substance: METRONIDAZOLE BENZOATE
     Dosage: QUANTITY: 1, DAYS: 1
     Dates: start: 20190225, end: 20190225
  26. MATRIFEN [Concomitant]
     Active Substance: FENTANYL
     Dosage: FORMULATION: PATCH, 12MCG/H 4.2 CM^2, QUANTITY: 1, DAYS: 11
     Dates: start: 20190226, end: 20190228
  27. MATRIFEN [Concomitant]
     Active Substance: FENTANYL
     Dosage: FORMULATION: PATCH, 12MCG/H 8.4 CM^2, QUANTITY: 1, DAYS: 4
     Dates: start: 20190421, end: 20190430
  28. DEXTROSE (+) SODIUM CHLORIDE [Concomitant]
     Dosage: QUANTITY: 2, DAYS: 1
     Dates: start: 20190225, end: 20190225
  29. MORPHINE HYDROCHLORIDE [Concomitant]
     Active Substance: MORPHINE HYDROCHLORIDE
     Dosage: QUANTITY: 1, DAYS: 2
     Dates: start: 20190418, end: 20190421

REACTIONS (7)
  - Adverse event [Unknown]
  - Post procedural drainage [Unknown]
  - Adverse event [Unknown]
  - Vascular stent insertion [Unknown]
  - Inappropriate schedule of product administration [Unknown]
  - Adverse event [Unknown]
  - Product use in unapproved indication [Unknown]

NARRATIVE: CASE EVENT DATE: 201902
